FAERS Safety Report 22067583 (Version 2)
Quarter: 2023Q1

REPORT INFORMATION
  Report Type: Report from Study
  Country: US (occurrence: US)
  Receive Date: 20230307
  Receipt Date: 20230323
  Transmission Date: 20230417
  Serious: Yes (Other)
  Sender: FDA-Public Use
  Company Number: US-ABBVIE-4280352

PATIENT
  Age: 63 Year
  Sex: Female

DRUGS (1)
  1. RINVOQ [Suspect]
     Active Substance: UPADACITINIB
     Indication: Rheumatoid arthritis
     Dosage: FORM STRENGTH -  15 MG
     Route: 048
     Dates: start: 20230115, end: 20230116

REACTIONS (9)
  - Pharyngeal operation [Unknown]
  - Localised infection [Recovering/Resolving]
  - Localised infection [Not Recovered/Not Resolved]
  - Pain in jaw [Unknown]
  - Toothache [Unknown]
  - Osteoporosis [Unknown]
  - Tooth loss [Not Recovered/Not Resolved]
  - Swelling [Recovering/Resolving]
  - Contusion [Unknown]

NARRATIVE: CASE EVENT DATE: 20230115
